FAERS Safety Report 7400315-9 (Version None)
Quarter: 2011Q2

REPORT INFORMATION
  Report Type: 
  Country: None (occurrence: None)
  Receive Date: 20110407
  Receipt Date: 20110329
  Transmission Date: 20111010
  Serious: Yes (Other)
  Sender: FDA-Public Use
  Company Number: US-ASTRAZENECA-2010SE03299

PATIENT
  Age: 55 Year
  Sex: Female

DRUGS (2)
  1. STEROID [Concomitant]
  2. NEXIUM [Suspect]
     Route: 048

REACTIONS (4)
  - EYE DISORDER [None]
  - MULTIPLE FRACTURES [None]
  - TOOTH LOSS [None]
  - GASTRITIS EROSIVE [None]
